FAERS Safety Report 5192028-1 (Version None)
Quarter: 2006Q4

REPORT INFORMATION
  Report Type: 
  Country: None (occurrence: None)
  Receive Date: 20061220
  Receipt Date: 20061220
  Transmission Date: 20070319
  Serious: Yes (Hospitalization)
  Sender: FDA-Public Use
  Company Number: None

PATIENT
  Age: 51 Year
  Sex: Male
  Weight: 115.6672 kg

DRUGS (8)
  1. ATENOLOL [Suspect]
     Indication: HYPERTENSION
     Dosage: PO CHRONIC
     Route: 048
  2. NORVASC [Concomitant]
  3. ENALAPRIL MALEATE [Concomitant]
  4. MORPHINE [Concomitant]
  5. PERCOCET [Concomitant]
  6. AGGRENOX [Concomitant]
  7. LASIX [Concomitant]
  8. ZOCOR [Concomitant]

REACTIONS (11)
  - BLOOD CREATININE INCREASED [None]
  - CHEST PAIN [None]
  - CORONARY ARTERY BYPASS [None]
  - DIALYSIS [None]
  - DYSPNOEA [None]
  - DYSPNOEA EXERTIONAL [None]
  - FATIGUE [None]
  - HEART RATE DECREASED [None]
  - HYPERTENSION [None]
  - NODAL ARRHYTHMIA [None]
  - RENAL FAILURE [None]
